FAERS Safety Report 24380438 (Version 1)
Quarter: 2024Q3

REPORT INFORMATION
  Report Type: Report from Study
  Country: US (occurrence: US)
  Receive Date: 20240930
  Receipt Date: 20240930
  Transmission Date: 20241016
  Serious: Yes (Hospitalization, Other)
  Sender: ALEXION PHARMACEUTICALS
  Company Number: US-AstraZeneca-CH-00534267A

PATIENT

DRUGS (1)
  1. SOLIRIS [Suspect]
     Active Substance: ECULIZUMAB
     Indication: Myasthenia gravis
     Dosage: UNK

REACTIONS (4)
  - Tendon injury [Not Recovered/Not Resolved]
  - Asthenia [Unknown]
  - Dysphagia [Not Recovered/Not Resolved]
  - Muscular weakness [Not Recovered/Not Resolved]
